FAERS Safety Report 16586989 (Version 1)
Quarter: 2019Q3

REPORT INFORMATION
  Report Type: Spontaneous
  Country: FR (occurrence: FR)
  Receive Date: 20190717
  Receipt Date: 20190717
  Transmission Date: 20191004
  Serious: Yes (Life-Threatening)
  Sender: FDA-Public Use
  Company Number: FR-TEVA-2019-FR-1078090

PATIENT
  Age: 20 Year
  Sex: Female

DRUGS (4)
  1. SMECTA, POUDRE POUR SUSPENSION BUVABLE EN SACHET [Concomitant]
     Dosage: 3 DOSAGE FORM FOR EVERY 1 DAYS
     Route: 048
     Dates: start: 20190329, end: 20190331
  2. OMEPRAZOLE CRISTERS 20 MG, G?LULE GASTRO-R?SISTANTE [Concomitant]
     Dosage: 1 DOSAGE FORM FOR EVERY 1 DAYS
     Route: 048
     Dates: start: 20190329, end: 20190331
  3. DICLOFENAC TEVA 50 MG, COMPRIM? ENROB? GASTRO-R?SISTANT [Suspect]
     Active Substance: DICLOFENAC SODIUM
     Indication: ARTHRALGIA
     Dosage: 3 DOSAGE FORM FOR EVERY 1 DAYS
     Route: 048
     Dates: start: 20190329, end: 20190331
  4. MIOREL 4 MG, G?LULE [Concomitant]
     Active Substance: THIOCOLCHICOSIDE
     Dosage: 4 DOSAGE FORM FOR EVERY 1 DAYS
     Route: 048
     Dates: start: 20190329, end: 20190331

REACTIONS (1)
  - Toxic shock syndrome staphylococcal [Recovered/Resolved]

NARRATIVE: CASE EVENT DATE: 20190331
